FAERS Safety Report 10023472 (Version 1)
Quarter: 2014Q1

REPORT INFORMATION
  Report Type: Spontaneous
  Country: US (occurrence: None)
  Receive Date: 20140319
  Receipt Date: 20140319
  Transmission Date: 20141002
  Serious: No
  Sender: FDA-Public Use
  Company Number: None

PATIENT
  Age: 59 Year
  Sex: Male
  Weight: 83.92 kg

DRUGS (2)
  1. OXYCODONE [Suspect]
     Indication: SPINAL OSTEOARTHRITIS
     Route: 048
     Dates: start: 20140206, end: 20140314
  2. OXYCODONE [Suspect]
     Indication: SPINAL OSTEOARTHRITIS
     Route: 048
     Dates: start: 20140206, end: 20140314

REACTIONS (5)
  - Headache [None]
  - Nausea [None]
  - Vomiting [None]
  - Oropharyngeal pain [None]
  - Dry throat [None]
